FAERS Safety Report 24396925 (Version 1)
Quarter: 2024Q4

REPORT INFORMATION
  Report Type: Spontaneous
  Country: LV (occurrence: LV)
  Receive Date: 20241004
  Receipt Date: 20241004
  Transmission Date: 20250115
  Serious: Yes (Death, Hospitalization)
  Sender: BAYER
  Company Number: LV-BAYER-2024A139226

PATIENT
  Age: 76 Year
  Sex: Male

DRUGS (1)
  1. XOFIGO [Suspect]
     Active Substance: RADIUM RA-223 DICHLORIDE
     Indication: Prostate cancer
     Dosage: 4.29 MBQ
     Dates: start: 20230803, end: 20230803

REACTIONS (4)
  - Death [Fatal]
  - Pain [None]
  - Pyrexia [None]
  - Leukopenia [None]

NARRATIVE: CASE EVENT DATE: 20230814
